FAERS Safety Report 10195648 (Version 2)
Quarter: 2014Q2

REPORT INFORMATION
  Report Type: Report from Study
  Country: US (occurrence: US)
  Receive Date: 20140527
  Receipt Date: 20140527
  Transmission Date: 20141212
  Serious: Yes (Hospitalization, Other)
  Sender: FDA-Public Use
  Company Number: US-BIOGENIDEC-2007BI001511

PATIENT
  Age: 27 Year
  Sex: Female

DRUGS (5)
  1. AVONEX [Suspect]
     Indication: MULTIPLE SCLEROSIS
     Route: 030
     Dates: start: 19970301
  2. AVONEX [Suspect]
     Indication: MULTIPLE SCLEROSIS
     Route: 030
     Dates: start: 19970619, end: 200308
  3. AVONEX [Suspect]
     Indication: MULTIPLE SCLEROSIS
     Route: 030
     Dates: start: 200308
  4. BACLOFEN [Concomitant]
  5. ZOLOFT [Concomitant]

REACTIONS (4)
  - Multiple sclerosis [Unknown]
  - Aura [Recovered/Resolved]
  - Generalised tonic-clonic seizure [Recovered/Resolved]
  - Dizziness [Recovered/Resolved]
